FAERS Safety Report 6052805-1 (Version None)
Quarter: 2009Q1

REPORT INFORMATION
  Report Type: 
  Country: None (occurrence: None)
  Receive Date: 20090127
  Receipt Date: 20090115
  Transmission Date: 20090719
  Serious: Yes (Life-Threatening, Hospitalization)
  Sender: FDA-Public Use
  Company Number: FR-WYE-H07824609

PATIENT
  Sex: Male

DRUGS (8)
  1. CORDARONE [Suspect]
     Indication: CARDIAC FAILURE
     Route: 048
     Dates: start: 20080725, end: 20081011
  2. CORDARONE [Suspect]
     Indication: ATRIAL FIBRILLATION
     Route: 048
     Dates: start: 20081012, end: 20081031
  3. CORDARONE [Suspect]
     Route: 048
     Dates: start: 20081101, end: 20081110
  4. SOLUPRED [Concomitant]
     Route: 048
  5. HEMIGOXINE NATIVELLE [Concomitant]
     Dosage: NOT PROVIDED
     Route: 048
  6. PREVISCAN [Concomitant]
     Dosage: NOT PROVIDED
     Route: 048
  7. LASILIX [Concomitant]
  8. OMEPRAZOLE [Concomitant]

REACTIONS (2)
  - BONE MARROW FAILURE [None]
  - PANCYTOPENIA [None]
